FAERS Safety Report 9084718 (Version 1)
Quarter: 2013Q1

REPORT INFORMATION
  Report Type: Spontaneous
  Country: ES (occurrence: ES)
  Receive Date: 20130130
  Receipt Date: 20130130
  Transmission Date: 20140127
  Serious: Yes (Hospitalization, Other)
  Sender: FDA-Public Use
  Company Number: ES-SHIRE-ALL1-2013-00458

PATIENT
  Age: 60 Year
  Sex: Male

DRUGS (3)
  1. FOSRENOL [Suspect]
     Indication: HYPERPHOSPHATAEMIA
     Dosage: 750 MG, 1X/DAY:QD
     Route: 048
     Dates: start: 20120606, end: 20130121
  2. HALOPERIDOL [Concomitant]
     Indication: SCHIZOPHRENIA
     Dosage: 60 GTT, 2X/DAY:BID
     Route: 065
  3. SINOGAN                            /00038602/ [Concomitant]
     Indication: SCHIZOPHRENIA
     Dosage: 1 DF, OTHER (1 BREAKFAST, 1 FOR LUNCH AND 0.5 FOR DINNER)
     Route: 065

REACTIONS (1)
  - Faecaloma [Recovering/Resolving]
